FAERS Safety Report 7589605-7 (Version None)
Quarter: 2011Q2

REPORT INFORMATION
  Report Type: 
  Country: None (occurrence: None)
  Receive Date: 20110603
  Receipt Date: 20110323
  Transmission Date: 20111010
  Serious: No
  Sender: FDA-Public Use
  Company Number: 2011SP013607

PATIENT
  Age: 51 Year
  Sex: Female

DRUGS (3)
  1. SAPHRIS [Suspect]
     Indication: BIPOLAR I DISORDER
     Dosage: 10 MG;HS;SL ; 10 MG;BID;SL
     Route: 059
     Dates: start: 20101216, end: 20110112
  2. SAPHRIS [Suspect]
     Indication: BIPOLAR I DISORDER
     Dosage: 10 MG;HS;SL ; 10 MG;BID;SL
     Route: 059
     Dates: start: 20110113, end: 20110319
  3. CELEXA [Suspect]
     Indication: PRODUCT USED FOR UNKNOWN INDICATION
     Dosage: 20 MG;QD ; 40 MG;QD

REACTIONS (2)
  - EYE MOVEMENT DISORDER [None]
  - INAPPROPRIATE SCHEDULE OF DRUG ADMINISTRATION [None]
